FAERS Safety Report 12129929 (Version 1)
Quarter: 2016Q1

REPORT INFORMATION
  Report Type: Spontaneous
  Country: US (occurrence: None)
  Receive Date: 20160229
  Receipt Date: 20160229
  Transmission Date: 20160526
  Serious: Yes (Other)
  Sender: FDA-Public Use
  Company Number: None

PATIENT
  Age: 65 Year
  Sex: Male
  Weight: 73.94 kg

DRUGS (6)
  1. LOSARTIN/HCT [Concomitant]
  2. OCUVITE [Concomitant]
     Active Substance: VITAMINS
  3. TESTOSTERONE. [Suspect]
     Active Substance: TESTOSTERONE
     Indication: BLOOD TESTOSTERONE DECREASED
     Dosage: 2 PUMPS TWICE DAILY APPLIED TO A SURFACE, USUALLY THE SKIN
     Dates: start: 20150501, end: 20160201
  4. FIBER PILLS [Concomitant]
  5. ADVAIR DISK (PURPLE) [Concomitant]
  6. 81MG ASPIRIN [Concomitant]

REACTIONS (7)
  - Product substitution issue [None]
  - Reaction to drug excipients [None]
  - Rash pustular [None]
  - Anorectal discomfort [None]
  - Skin irritation [None]
  - Dry skin [None]
  - Anal haemorrhage [None]

NARRATIVE: CASE EVENT DATE: 20160201
